FAERS Safety Report 4356603-6 (Version None)
Quarter: 2004Q2

REPORT INFORMATION
  Report Type: 
  Country: None (occurrence: None)
  Receive Date: 20040507
  Receipt Date: 20040423
  Transmission Date: 20050107
  Serious: Yes (Hospitalization)
  Sender: FDA-Public Use
  Company Number: 2004EU000840

PATIENT
  Age: 40 Year
  Sex: Female
  Weight: 63 kg

DRUGS (9)
  1. PROGRAF [Suspect]
     Indication: RENAL TRANSPLANT
     Dosage: 2.00MG, BID, ORAL; SEE IMAGE
     Route: 048
     Dates: start: 20040118, end: 20040326
  2. PROGRAF [Suspect]
     Indication: RENAL TRANSPLANT
     Dosage: 2.00MG, BID, ORAL; SEE IMAGE
     Route: 048
     Dates: start: 20040326, end: 20040402
  3. PROGRAF [Suspect]
     Indication: RENAL TRANSPLANT
     Dosage: 2.00MG, BID, ORAL; SEE IMAGE
     Route: 048
     Dates: start: 20010403, end: 20040404
  4. PROGRAF [Suspect]
     Indication: RENAL TRANSPLANT
     Dosage: 2.00MG, BID, ORAL; SEE IMAGE
     Route: 048
     Dates: start: 20040405
  5. VORICONAZOLE (VORICONAZOLE) [Suspect]
     Dosage: 200.00 MG, BID, ORAL
     Route: 048
     Dates: start: 20040326, end: 20040402
  6. VORICONAZOLE (VORICONAZOLE) [Suspect]
     Dosage: 200.00 MG, BID, ORAL
     Route: 048
     Dates: start: 20040406
  7. CELLCEPT [Concomitant]
  8. ROCEPHIN [Concomitant]
  9. STILNOX (ZOLPIDEM) [Concomitant]

REACTIONS (5)
  - BLOOD CREATININE INCREASED [None]
  - CONVULSION [None]
  - DRUG INTERACTION [None]
  - DRUG LEVEL INCREASED [None]
  - ENCEPHALITIS HERPES [None]
